FAERS Safety Report 14856678 (Version 1)
Quarter: 2018Q2

REPORT INFORMATION
  Report Type: Spontaneous
  Country: US (occurrence: US)
  Receive Date: 20180507
  Receipt Date: 20180507
  Transmission Date: 20180711
  Serious: No
  Sender: FDA-Public Use
  Company Number: US-ROCHE-2046241

PATIENT
  Sex: Male

DRUGS (12)
  1. RESVERATROL [Concomitant]
     Active Substance: DIETARY SUPPLEMENT\RESVERATROL
     Route: 065
  2. ESBRIET [Suspect]
     Active Substance: PIRFENIDONE
     Indication: IDIOPATHIC PULMONARY FIBROSIS
     Route: 048
  3. ESBRIET [Suspect]
     Active Substance: PIRFENIDONE
     Route: 048
  4. ESBRIET [Suspect]
     Active Substance: PIRFENIDONE
     Route: 048
  5. FISH OIL [Concomitant]
     Active Substance: FISH OIL
     Route: 065
  6. FLAXSEED [Concomitant]
     Active Substance: FLAX SEED
     Route: 065
  7. COMBIVENT [Concomitant]
     Active Substance: ALBUTEROL SULFATE\IPRATROPIUM BROMIDE
  8. IMODIUM A-D [Concomitant]
     Active Substance: LOPERAMIDE HYDROCHLORIDE
     Route: 065
  9. PROVENTIL HFA [Concomitant]
     Active Substance: ALBUTEROL SULFATE
  10. KLONOPIN [Concomitant]
     Active Substance: CLONAZEPAM
     Route: 048
  11. ALBUTEROL/IPRATROPIUM [Concomitant]
     Active Substance: ALBUTEROL\IPRATROPIUM
  12. TRAZODONE [Concomitant]
     Active Substance: TRAZODONE HYDROCHLORIDE
     Route: 065

REACTIONS (3)
  - Diarrhoea [Not Recovered/Not Resolved]
  - Gastrointestinal disorder [Not Recovered/Not Resolved]
  - Gastric disorder [Not Recovered/Not Resolved]
